FAERS Safety Report 11123659 (Version 1)
Quarter: 2015Q2

REPORT INFORMATION
  Report Type: Spontaneous
  Country: PT (occurrence: PT)
  Receive Date: 20150519
  Receipt Date: 20150519
  Transmission Date: 20150821
  Serious: Yes (Other)
  Sender: FDA-Public Use
  Company Number: PHHY2013PT054873

PATIENT
  Sex: Male

DRUGS (9)
  1. ACUTIL [Concomitant]
     Indication: PRODUCT USED FOR UNKNOWN INDICATION
     Route: 048
  2. LOSARTAN [Concomitant]
     Active Substance: LOSARTAN
     Indication: PRODUCT USED FOR UNKNOWN INDICATION
     Dosage: 50 MG, QD
     Route: 048
  3. GLUCOSAMIN [Concomitant]
     Indication: PRODUCT USED FOR UNKNOWN INDICATION
     Dosage: 1500 MG, QD
     Route: 048
  4. PRAVASTATIN [Concomitant]
     Active Substance: PRAVASTATIN\PRAVASTATIN SODIUM
     Indication: BLOOD CHOLESTEROL ABNORMAL
     Dosage: 20 MG, UNK
     Route: 048
  5. BILOBAN [Concomitant]
     Indication: PRODUCT USED FOR UNKNOWN INDICATION
     Dosage: 40 MG, TID
     Route: 048
  6. PROMETAX [Suspect]
     Active Substance: RIVASTIGMINE
     Dosage: 9.5 MG,  DAILY
     Route: 062
  7. LORAZEPAM. [Concomitant]
     Active Substance: LORAZEPAM
     Indication: PRODUCT USED FOR UNKNOWN INDICATION
     Dosage: 0.5 DF, QD
     Route: 048
  8. PROMETAX [Suspect]
     Active Substance: RIVASTIGMINE
     Indication: DEMENTIA ALZHEIMER^S TYPE
     Dosage: 9.5 MG, DAILY
     Route: 062
  9. PROMETAX [Suspect]
     Active Substance: RIVASTIGMINE
     Dosage: UNK
     Route: 062

REACTIONS (16)
  - Initial insomnia [Unknown]
  - Fall [Unknown]
  - Loss of libido [Not Recovered/Not Resolved]
  - Asthenia [Unknown]
  - Speech disorder [Unknown]
  - Malaise [Unknown]
  - Overdose [Unknown]
  - Nervousness [Unknown]
  - Memory impairment [Unknown]
  - Cataract [Recovered/Resolved]
  - Fear of falling [Unknown]
  - Dizziness [Unknown]
  - Deafness [Recovered/Resolved]
  - Aggression [Unknown]
  - Depressed mood [Unknown]
  - Expired product administered [Not Recovered/Not Resolved]
